FAERS Safety Report 10449653 (Version 2)
Quarter: 2014Q4

REPORT INFORMATION
  Report Type: Spontaneous
  Country: US (occurrence: US)
  Receive Date: 20140912
  Receipt Date: 20141211
  Transmission Date: 20150528
  Serious: No
  Sender: FDA-Public Use
  Company Number: US-INCYTE CORPORATION-2014IN001615

PATIENT
  Sex: Male

DRUGS (8)
  1. JAKAFI [Suspect]
     Active Substance: RUXOLITINIB
     Dosage: 15 MG, BID
     Route: 048
     Dates: start: 2014, end: 201409
  2. ALLOPURINOL. [Concomitant]
     Active Substance: ALLOPURINOL
  3. PRILOSEC [Concomitant]
     Active Substance: OMEPRAZOLE MAGNESIUM
  4. PREDNISONE. [Concomitant]
     Active Substance: PREDNISONE
  5. ATENOLOL. [Concomitant]
     Active Substance: ATENOLOL
  6. PROCRIT [Concomitant]
     Active Substance: ERYTHROPOIETIN
  7. JAKAFI [Suspect]
     Active Substance: RUXOLITINIB
     Indication: MYELOFIBROSIS
     Dosage: 40 MG, BID
     Route: 048
     Dates: start: 20140412
  8. JAKAFI [Suspect]
     Active Substance: RUXOLITINIB
     Dosage: 10 MG, BID
     Route: 048
     Dates: start: 20140904

REACTIONS (5)
  - Dizziness [Unknown]
  - Paraesthesia [Unknown]
  - Muscle spasms [Unknown]
  - Haematocrit decreased [Unknown]
  - Diarrhoea [Unknown]
